FAERS Safety Report 5848564-5 (Version None)
Quarter: 2008Q3

REPORT INFORMATION
  Report Type: 
  Country: None (occurrence: None)
  Receive Date: 20080818
  Receipt Date: 20080810
  Transmission Date: 20090109
  Serious: Yes (Hospitalization, Other)
  Sender: FDA-Public Use
  Company Number: US-AMGEN-QUU300629

PATIENT
  Sex: Female

DRUGS (2)
  1. ENBREL [Suspect]
     Indication: RHEUMATOID ARTHRITIS
     Route: 058
     Dates: start: 20071004
  2. METHOTREXATE SODIUM [Concomitant]
     Route: 048

REACTIONS (10)
  - BACK PAIN [None]
  - CATHETERISATION CARDIAC [None]
  - CHEST PAIN [None]
  - CHILLS [None]
  - DYSPNOEA [None]
  - LUNG NEOPLASM [None]
  - NECK PAIN [None]
  - PNEUMONIA [None]
  - PYREXIA [None]
  - VOMITING [None]
